FAERS Safety Report 6198569-2 (Version None)
Quarter: 2009Q2

REPORT INFORMATION
  Report Type: 
  Country: None (occurrence: None)
  Receive Date: 20090521
  Receipt Date: 20090519
  Transmission Date: 20091009
  Serious: No
  Sender: FDA-Public Use
  Company Number: US-B.I. PHARMACEUTICALS,INC./RIDGEFIELD-2009-BP-05666BP

PATIENT
  Age: 71 Year
  Sex: Male

DRUGS (2)
  1. CATAPRES-TTS-1 [Suspect]
     Indication: HYPERTENSION
     Dosage: .1MG
     Route: 061
     Dates: start: 20090101, end: 20090406
  2. CATAPRES-TTS-1 [Suspect]
     Dosage: .2MG
     Route: 061
     Dates: start: 20090406

REACTIONS (1)
  - BLOOD PRESSURE INCREASED [None]
